FAERS Safety Report 6139627-8 (Version None)
Quarter: 2009Q1

REPORT INFORMATION
  Report Type: 
  Country: None (occurrence: None)
  Receive Date: 20090331
  Receipt Date: 20090331
  Transmission Date: 20090719
  Serious: Yes (Life-Threatening)
  Sender: FDA-Public Use
  Company Number: None

PATIENT
  Age: 58 Year
  Sex: Female
  Weight: 78 kg

DRUGS (6)
  1. MEPERIDINE HCL [Suspect]
     Indication: ANALGESIA
     Dosage: 50-100MG Q5 PRN IM
     Route: 030
     Dates: start: 20090225
  2. ZOFRAN [Concomitant]
  3. ANCEF [Concomitant]
  4. DECADRON [Concomitant]
  5. CEPACOL [Concomitant]
  6. PHENERGAN [Concomitant]

REACTIONS (1)
  - UNRESPONSIVE TO STIMULI [None]
